FAERS Safety Report 8514246-4 (Version None)
Quarter: 2012Q3

REPORT INFORMATION
  Report Type: 
  Country: None (occurrence: None)
  Receive Date: 20120717
  Receipt Date: 20120710
  Transmission Date: 20120928
  Serious: Yes (Death)
  Sender: FDA-Public Use
  Company Number: CA-JNJFOC-20120706527

PATIENT

DRUGS (5)
  1. VINCRISTINE [Suspect]
     Indication: B-CELL LYMPHOMA
     Route: 065
  2. RITUXAN [Suspect]
     Indication: B-CELL LYMPHOMA
     Route: 065
  3. PREDNISONE [Suspect]
     Indication: B-CELL LYMPHOMA
     Route: 065
  4. DOXORUBICIN HCL [Suspect]
     Indication: B-CELL LYMPHOMA
     Route: 042
  5. CYCLOPHOSPHAMIDE [Suspect]
     Indication: B-CELL LYMPHOMA
     Route: 065

REACTIONS (1)
  - SEPSIS [None]
